FAERS Safety Report 25728115 (Version 1)
Quarter: 2025Q3

REPORT INFORMATION
  Report Type: Spontaneous
  Country: US (occurrence: US)
  Receive Date: 20250826
  Receipt Date: 20250826
  Transmission Date: 20251020
  Serious: Yes (Death, Hospitalization, Other)
  Sender: AMGEN
  Company Number: US-AMGEN-USASP2025163309

PATIENT
  Age: 38 Year
  Sex: Female

DRUGS (4)
  1. PREDNISONE [Suspect]
     Active Substance: PREDNISONE
     Indication: Encephalitis
     Route: 065
  2. RITUXIMAB [Suspect]
     Active Substance: RITUXIMAB
     Indication: Encephalitis
     Dosage: 1000 MILLIGRAM, Q2WK
     Route: 065
  3. METHYLPREDNISOLONE [Concomitant]
     Active Substance: METHYLPREDNISOLONE
     Dosage: 1000 MILLIGRAM, QD FOR 5 DAYS
     Route: 040
  4. HUMAN IMMUNOGLOBULIN G [Concomitant]
     Active Substance: HUMAN IMMUNOGLOBULIN G
     Dosage: 0.4 GRAM PER KILOGRAM, QD FOR 8 CONSECUTIVE DAYS
     Route: 040

REACTIONS (17)
  - Death [Fatal]
  - Enterococcal infection [Unknown]
  - Decubitus ulcer [Unknown]
  - Hypovolaemia [Unknown]
  - Dyskinesia [Unknown]
  - General physical health deterioration [Unknown]
  - Hyponatraemia [Unknown]
  - Polyuria [Unknown]
  - Bradycardia [Unknown]
  - Seizure [Unknown]
  - Decreased appetite [Unknown]
  - Hypotension [Unknown]
  - Leukopenia [Unknown]
  - Thrombocytopenia [Unknown]
  - Candida infection [Unknown]
  - Nausea [Unknown]
  - Off label use [Unknown]
